FAERS Safety Report 9282536 (Version 1)
Quarter: 2013Q2

REPORT INFORMATION
  Report Type: Spontaneous
  Country: US (occurrence: US)
  Receive Date: 20130510
  Receipt Date: 20130510
  Transmission Date: 20140414
  Serious: Yes (Hospitalization, Other)
  Sender: FDA-Public Use
  Company Number: US-PFIZER INC-2013145126

PATIENT
  Age: 49 Year
  Sex: Female
  Weight: 86.62 kg

DRUGS (6)
  1. LYRICA [Suspect]
     Indication: FIBROMYALGIA
     Dosage: 75 MG, 2X/DAY
     Dates: start: 2011
  2. METFORMIN [Concomitant]
     Indication: DIABETES MELLITUS
     Dosage: 1000+1500 MG, 2X/DAY
     Route: 048
     Dates: start: 2011
  3. GLIPIZIDE [Concomitant]
     Indication: DIABETES MELLITUS
     Dosage: 4 MG, 2X/DAY
  4. METOPROLOL [Concomitant]
     Dosage: 50 MG, UNK
  5. CLONIDINE [Concomitant]
     Indication: HYPERTENSION
     Dosage: 2 MG, 2X/DAY
  6. PRAVASTATIN SODIUM [Concomitant]
     Indication: BLOOD CHOLESTEROL ABNORMAL
     Dosage: 40MG DAILY

REACTIONS (2)
  - Vaginal haemorrhage [Unknown]
  - Lymphoma [Unknown]
